FAERS Safety Report 11176590 (Version 1)
Quarter: 2015Q2

REPORT INFORMATION
  Report Type: Spontaneous
  Country: US (occurrence: None)
  Receive Date: 20150608
  Receipt Date: 20150608
  Transmission Date: 20150821
  Serious: Yes (Other)
  Sender: FDA-Public Use
  Company Number: 001929521A

PATIENT
  Age: 20 Year
  Sex: Female

DRUGS (2)
  1. PROACTIV PLUS COMPLEXION PERFECTING HYDRATOR [Suspect]
     Active Substance: SALICYLIC ACID
     Indication: ACNE
     Dosage: TWICE DAILY DERMAL
     Dates: start: 20150319, end: 20150501
  2. PROACTIV PLUS CLEANSING BODY BAR [Suspect]
     Active Substance: SALICYLIC ACID
     Indication: ACNE
     Dosage: TWICE DAILY DERMAL
     Dates: start: 20150319, end: 20150501

REACTIONS (5)
  - Eyelid oedema [None]
  - Rash [None]
  - Furuncle [None]
  - Hypersensitivity [None]
  - Thermal burn [None]

NARRATIVE: CASE EVENT DATE: 20150321
